FAERS Safety Report 12778136 (Version 1)
Quarter: 2016Q3

REPORT INFORMATION
  Report Type: Spontaneous
  Country: US (occurrence: US)
  Receive Date: 20160925
  Receipt Date: 20160925
  Transmission Date: 20161109
  Serious: Yes (Hospitalization)
  Sender: FDA-Public Use
  Company Number: US-BEH-2016073656

PATIENT
  Age: 90 Year
  Sex: Female
  Weight: 67.12 kg

DRUGS (29)
  1. HIZENTRA [Suspect]
     Active Substance: HUMAN IMMUNOGLOBULIN G
     Dosage: 8 G, QW
     Route: 058
     Dates: start: 201609
  2. CHLORPHENIRAMINE                   /00072501/ [Concomitant]
     Active Substance: CHLORPHENIRAMINE
  3. CITRACAL                           /00751520/ [Concomitant]
     Active Substance: CALCIUM CITRATE
  4. VICODIN [Concomitant]
     Active Substance: ACETAMINOPHEN\HYDROCODONE BITARTRATE
  5. FUROSEMIDE. [Concomitant]
     Active Substance: FUROSEMIDE
  6. DIPHENHYDRAMINE. [Concomitant]
     Active Substance: DIPHENHYDRAMINE
  7. LANTUS [Concomitant]
     Active Substance: INSULIN GLARGINE
  8. LUMIGAN [Concomitant]
     Active Substance: BIMATOPROST
  9. LOSARTAN. [Concomitant]
     Active Substance: LOSARTAN
  10. PREDNISONE. [Concomitant]
     Active Substance: PREDNISONE
  11. MELOXICAM. [Concomitant]
     Active Substance: MELOXICAM
  12. RANITIDINE. [Concomitant]
     Active Substance: RANITIDINE
  13. GABAPENTIN. [Concomitant]
     Active Substance: GABAPENTIN
  14. LORAZEPAM. [Concomitant]
     Active Substance: LORAZEPAM
  15. OXYCONTIN [Concomitant]
     Active Substance: OXYCODONE HYDROCHLORIDE
  16. AMLODIPINE [Concomitant]
     Active Substance: AMLODIPINE BESYLATE
  17. VALIUM [Concomitant]
     Active Substance: DIAZEPAM
  18. DULCOLAX (BISACODYL) [Concomitant]
     Active Substance: BISACODYL
  19. MIRALAX [Concomitant]
     Active Substance: POLYETHYLENE GLYCOL 3350
  20. BUDESONIDE. [Concomitant]
     Active Substance: BUDESONIDE
  21. PROAIR HFA [Concomitant]
     Active Substance: ALBUTEROL SULFATE
  22. ALBUTEROL                          /00139501/ [Concomitant]
     Active Substance: ALBUTEROL
  23. CLOTRIMAZOLE. [Concomitant]
     Active Substance: CLOTRIMAZOLE
  24. AFRIN [Concomitant]
     Active Substance: OXYMETAZOLINE
  25. HIZENTRA [Suspect]
     Active Substance: HUMAN IMMUNOGLOBULIN G
     Indication: IMMUNODEFICIENCY COMMON VARIABLE
     Dosage: 8 G, QW
     Route: 058
     Dates: start: 20101027
  26. ARTHRITIS PAIN FORMULA [Concomitant]
  27. LIDOCAINE. [Concomitant]
     Active Substance: LIDOCAINE
  28. ZETIA [Concomitant]
     Active Substance: EZETIMIBE
  29. ASPIRIN. [Concomitant]
     Active Substance: ASPIRIN

REACTIONS (3)
  - Eating disorder [Unknown]
  - Dyspnoea [Unknown]
  - Nausea [Unknown]
